FAERS Safety Report 7090818-1 (Version None)
Quarter: 2010Q4

REPORT INFORMATION
  Report Type: 
  Country: None (occurrence: None)
  Receive Date: 20101012
  Receipt Date: 20100409
  Transmission Date: 20110411
  Serious: Yes (Hospitalization)
  Sender: FDA-Public Use
  Company Number: 1000009544

PATIENT
  Age: 79 Year
  Sex: Female

DRUGS (2)
  1. LEXAPRO [Suspect]
     Indication: DEPRESSION
     Dosage: ORAL
     Route: 048
     Dates: start: 20091001, end: 20091004
  2. HIGH BLOOD PRESSURE MEDICATION NOS [Concomitant]

REACTIONS (3)
  - ASTHENIA [None]
  - BLOOD SODIUM DECREASED [None]
  - FEELING ABNORMAL [None]
